FAERS Safety Report 4618488-X (Version None)
Quarter: 2005Q2

REPORT INFORMATION
  Report Type: 
  Country: None (occurrence: None)
  Receive Date: 20050311
  Receipt Date: 20041104
  Transmission Date: 20051028
  Serious: No
  Sender: FDA-Public Use
  Company Number: 2004-BP-10417BP

PATIENT
  Age: 43 Year
  Sex: Male
  Weight: 96.36 kg

DRUGS (9)
  1. SPIRIVA [Suspect]
     Indication: CHRONIC OBSTRUCTIVE PULMONARY DISEASE
     Dosage: 18 MCG (18 MCG), IH
     Route: 055
     Dates: start: 20040924, end: 20040924
  2. COUMADIN [Concomitant]
  3. SINGULAIR [Concomitant]
  4. VICODIN [Concomitant]
  5. ALBUTEROL [Concomitant]
  6. NEURONTIN [Concomitant]
  7. ADVAIR DISKUS 100/50 [Concomitant]
  8. CPAP [Concomitant]
  9. SEREVENT [Concomitant]

REACTIONS (3)
  - ASTHMA [None]
  - COUGH [None]
  - DYSPNOEA [None]
